FAERS Safety Report 10211021 (Version 1)
Quarter: 2014Q2

REPORT INFORMATION
  Report Type: Spontaneous
  Country: US (occurrence: None)
  Receive Date: 20140528
  Receipt Date: 20140528
  Transmission Date: 20141212
  Serious: Yes (Other)
  Sender: FDA-Public Use
  Company Number: UTC-046361

PATIENT
  Age: 74 Year
  Sex: Male
  Weight: 88.6 kg

DRUGS (2)
  1. TYVASO [Suspect]
     Indication: PULMONARY ARTERIAL HYPERTENSION
     Route: 055
     Dates: start: 20091030
  2. TRACLEER (BOSENTAN) [Concomitant]

REACTIONS (5)
  - Loss of consciousness [None]
  - Dizziness [None]
  - Hypotension [None]
  - Syncope [None]
  - Oedema [None]
